FAERS Safety Report 16356100 (Version 1)
Quarter: 2019Q2

REPORT INFORMATION
  Report Type: Spontaneous
  Country: US (occurrence: US)
  Receive Date: 20190526
  Receipt Date: 20190526
  Transmission Date: 20190711
  Serious: No
  Sender: FDA-Public Use
  Company Number: US-JNJFOC-20190516388

PATIENT
  Age: 5 Decade
  Sex: Female

DRUGS (1)
  1. ETRAVIRINE [Suspect]
     Active Substance: ETRAVIRINE
     Indication: PRODUCT USED FOR UNKNOWN INDICATION
     Route: 048
     Dates: start: 20190205

REACTIONS (5)
  - Off label use [Unknown]
  - Back pain [Unknown]
  - Product use issue [Unknown]
  - Musculoskeletal pain [Unknown]
  - Feeling abnormal [Unknown]
